FAERS Safety Report 5373721-4 (Version None)
Quarter: 2007Q2

REPORT INFORMATION
  Report Type: 
  Country: None (occurrence: None)
  Receive Date: 20070626
  Receipt Date: 20070221
  Transmission Date: 20071010
  Serious: Yes (Death)
  Sender: FDA-Public Use
  Company Number: 2007BH002284

PATIENT
  Age: 22 Year
  Sex: Male

DRUGS (4)
  1. HEPARIN [Suspect]
     Indication: DEEP VEIN THROMBOSIS
     Dosage: IV
     Route: 042
     Dates: start: 20020516
  2. HEPARIN [Suspect]
     Indication: PULMONARY EMBOLISM
     Dosage: IV
     Route: 042
     Dates: start: 20020516
  3. COUMADIN [Concomitant]
  4. STEROIDS [Concomitant]

REACTIONS (1)
  - MYOCARDIAL INFARCTION [None]
